FAERS Safety Report 23775443 (Version 1)
Quarter: 2024Q2

REPORT INFORMATION
  Report Type: Spontaneous
  Country: MX (occurrence: MX)
  Receive Date: 20240423
  Receipt Date: 20240423
  Transmission Date: 20240716
  Serious: Yes (Hospitalization)
  Sender: FDA-Public Use
  Company Number: MX-LUNDBECK-DKLU3077115

PATIENT
  Age: 49 Year
  Sex: Female
  Weight: 58 kg

DRUGS (1)
  1. CLOBAZAM [Suspect]
     Active Substance: CLOBAZAM
     Indication: Product used for unknown indication
     Route: 065

REACTIONS (2)
  - Fall [Unknown]
  - Joint injury [Unknown]
